FAERS Safety Report 7082656-0 (Version None)
Quarter: 2010Q4

REPORT INFORMATION
  Report Type: 
  Country: None (occurrence: None)
  Receive Date: 20101026
  Receipt Date: 20101019
  Transmission Date: 20110411
  Serious: Yes (Other)
  Sender: FDA-Public Use
  Company Number: 729078

PATIENT
  Age: 76 Year
  Sex: Female

DRUGS (10)
  1. AMINOPHYLLINE [Suspect]
     Indication: SCAN MYOCARDIAL PERFUSION
     Dosage: 150 MG MILLIGRAM(S), INTRAVENOUS
     Route: 042
  2. DIPYRIDAMOLE [Concomitant]
  3. (TETROFOSMIN) [Concomitant]
  4. ATENOLOL [Concomitant]
  5. (CELECOXIB) [Concomitant]
  6. HYDROMORPHONE HCL [Concomitant]
  7. ACETAMINOPHEN W/ CODEINE [Concomitant]
  8. AMITRIPTYLINE HCL [Concomitant]
  9. (CALCIUM) [Concomitant]
  10. VITAMIN A [Concomitant]

REACTIONS (5)
  - DRUG ERUPTION [None]
  - DRUG HYPERSENSITIVITY [None]
  - PRURITUS GENERALISED [None]
  - RASH GENERALISED [None]
  - SKIN TEST POSITIVE [None]
